FAERS Safety Report 15490676 (Version 1)
Quarter: 2018Q4

REPORT INFORMATION
  Report Type: Spontaneous
  Country: IT (occurrence: IT)
  Receive Date: 20181011
  Receipt Date: 20181011
  Transmission Date: 20190205
  Serious: Yes (Hospitalization)
  Sender: FDA-Public Use
  Company Number: IT-ALLERGAN-CIP00001258

PATIENT
  Age: 38 Year
  Sex: Male

DRUGS (2)
  1. MESALAZINE UNK [Suspect]
     Active Substance: MESALAMINE
     Indication: HAEMATOCHEZIA
     Dosage: 2400 MG DAILY
     Route: 048
     Dates: start: 1995
  2. MESALAZINE UNK [Suspect]
     Active Substance: MESALAMINE
     Indication: DIARRHOEA
     Dosage: 2400 MG DAILY
     Route: 048
     Dates: start: 199902, end: 199903

REACTIONS (10)
  - Eosinophilic pleural effusion [Recovered/Resolved]
  - Computerised tomogram abnormal [Recovered/Resolved]
  - Dyspnoea exertional [Recovered/Resolved]
  - Rales [Recovered/Resolved]
  - Pyrexia [Recovered/Resolved]
  - Eosinophil count increased [Recovered/Resolved]
  - Organising pneumonia [Recovered/Resolved]
  - Red blood cell sedimentation rate increased [Recovered/Resolved]
  - Neutrophil count increased [Recovered/Resolved]
  - Cough [Recovered/Resolved]

NARRATIVE: CASE EVENT DATE: 1999
